FAERS Safety Report 4878084-6 (Version None)
Quarter: 2006Q1

REPORT INFORMATION
  Report Type: 
  Country: None (occurrence: None)
  Receive Date: 20060110
  Receipt Date: 20051229
  Transmission Date: 20060701
  Serious: Yes (Other)
  Sender: FDA-Public Use
  Company Number: 2006001080

PATIENT
  Age: 82 Year
  Sex: Male
  Weight: 95.709 kg

DRUGS (7)
  1. VIAGRA [Suspect]
     Indication: ERECTILE DYSFUNCTION
     Dosage: 50 MG (50 MG, 1 AS NECESSARY)
  2. ADALAT [Concomitant]
  3. CENTRUM SILVER (ASCORBIC ACID, CALCIUM, MINERAL NOS, RETINOL, TOCOPHER [Concomitant]
  4. PRESERVISION SOFTGELS WITH LUTEIN (MINERALS NOS, VITAMINS NOS, XANTHOP [Concomitant]
  5. VITAMIN D [Concomitant]
  6. ASPIRIN C (ACETYLSALICYLIC ACID, ASCORBIC ACID) [Concomitant]
  7. FOLIC ACID [Concomitant]

REACTIONS (2)
  - MACULAR DEGENERATION [None]
  - OCULAR HYPERAEMIA [None]
